FAERS Safety Report 17407618 (Version 2)
Quarter: 2020Q1

REPORT INFORMATION
  Report Type: Spontaneous
  Country: GB (occurrence: GB)
  Receive Date: 20200212
  Receipt Date: 20200313
  Transmission Date: 20200409
  Serious: Yes (Other)
  Sender: FDA-Public Use
  Company Number: GB-ELI_LILLY_AND_COMPANY-GB202002000491

PATIENT
  Age: 75 Year
  Sex: Female
  Weight: 55.4 kg

DRUGS (2)
  1. CISPLATIN. [Suspect]
     Active Substance: CISPLATIN
     Indication: OVARIAN CANCER
     Dosage: STRENGTH: 30 MG/SQ. METER, ON DAY 1 AND DAY 8 OF A 3 WEEK CYCLE
     Route: 042
     Dates: start: 20190404, end: 20191216
  2. GEMCITABINE HYDROCHLORIDE. [Suspect]
     Active Substance: GEMCITABINE HYDROCHLORIDE
     Indication: OVARIAN CANCER
     Dosage: STRENGTH: 1000 MG/SQ. METER, ON DAY 1 AND DAY 8 OF A 3 WEEK CYCLE
     Route: 042
     Dates: start: 20190404, end: 20191116

REACTIONS (1)
  - Oroticaciduria [Unknown]

NARRATIVE: CASE EVENT DATE: 20191224
